FAERS Safety Report 24387456 (Version 3)
Quarter: 2024Q4

REPORT INFORMATION
  Report Type: Spontaneous
  Country: US (occurrence: US)
  Receive Date: 20241002
  Receipt Date: 20241122
  Transmission Date: 20250115
  Serious: Yes (Other)
  Sender: PFIZER
  Company Number: US-PFIZER INC-PV202400127636

PATIENT
  Age: 37 Year
  Sex: Female
  Weight: 89.58 kg

DRUGS (4)
  1. IBRANCE [Suspect]
     Active Substance: PALBOCICLIB
     Indication: Breast cancer female
     Dosage: 125 MG, DAILY
     Route: 048
     Dates: start: 202204
  2. IBRANCE [Suspect]
     Active Substance: PALBOCICLIB
     Indication: Invasive ductal breast carcinoma
     Dosage: 100 MG DAY 1 THROUGH 21 OF A 28 DAY CYCLE
     Route: 048
     Dates: start: 202408
  3. LUPRON [Concomitant]
     Active Substance: LEUPROLIDE ACETATE
     Indication: Invasive ductal breast carcinoma
     Dosage: UNK, MONTHLY
  4. FASLODEX [Concomitant]
     Active Substance: FULVESTRANT
     Indication: Invasive ductal breast carcinoma
     Dosage: UNK, MONTHLY

REACTIONS (13)
  - Neutropenia [Unknown]
  - Leukopenia [Unknown]
  - Febrile neutropenia [Unknown]
  - Pain in extremity [Unknown]
  - Peripheral swelling [Unknown]
  - Rash [Unknown]
  - Thrombocytosis [Unknown]
  - Inflammation [Unknown]
  - Anaemia [Not Recovered/Not Resolved]
  - Skin lesion [Unknown]
  - Skin ulcer [Unknown]
  - Lymphoedema [Unknown]
  - Swelling [Unknown]

NARRATIVE: CASE EVENT DATE: 20220513
